FAERS Safety Report 19483480 (Version 1)
Quarter: 2021Q3

REPORT INFORMATION
  Report Type: Report from Study
  Country: GB (occurrence: GB)
  Receive Date: 20210701
  Receipt Date: 20210701
  Transmission Date: 20211014
  Serious: Yes (Other)
  Sender: FDA-Public Use
  Company Number: GB-SAMSUNG BIOEPIS-SB-2020-27490

PATIENT
  Age: 90 Year
  Sex: Female

DRUGS (2)
  1. BENEPALI [Suspect]
     Active Substance: ETANERCEPT
     Indication: RHEUMATOID ARTHRITIS
     Route: 058
     Dates: start: 20200713, end: 20200817
  2. BENEPALI [Suspect]
     Active Substance: ETANERCEPT
     Route: 058

REACTIONS (28)
  - Vertigo [Unknown]
  - Back pain [Unknown]
  - Hand dermatitis [Unknown]
  - Malaise [Unknown]
  - Stress [Unknown]
  - Injection site pain [Unknown]
  - Arthropathy [Unknown]
  - Restlessness [Unknown]
  - Drug ineffective [Unknown]
  - Wrong technique in product usage process [Unknown]
  - Insomnia [Unknown]
  - Ill-defined disorder [Unknown]
  - Discomfort [Unknown]
  - Peripheral swelling [Unknown]
  - Breast cancer female [Unknown]
  - Osteoarthritis [Unknown]
  - Pain in extremity [Unknown]
  - Panic disorder [Unknown]
  - Depressed mood [Unknown]
  - Arthralgia [Unknown]
  - Mobility decreased [Unknown]
  - Psychiatric symptom [Unknown]
  - Accidental exposure to product [Unknown]
  - Loss of personal independence in daily activities [Unknown]
  - Dyspnoea [Unknown]
  - Lymphoedema [Unknown]
  - Exposure via skin contact [Unknown]
  - Product quality issue [Unknown]
